FAERS Safety Report 15109502 (Version 1)
Quarter: 2018Q3

REPORT INFORMATION
  Report Type: Spontaneous
  Country: US (occurrence: US)
  Receive Date: 20180705
  Receipt Date: 20180705
  Transmission Date: 20181010
  Serious: No
  Sender: FDA-Public Use
  Company Number: US-PFIZER INC-2018270988

PATIENT
  Age: 48 Year
  Sex: Female

DRUGS (1)
  1. CLINDAMYCIN HCL [Suspect]
     Active Substance: CLINDAMYCIN HYDROCHLORIDE
     Indication: INFECTION
     Dosage: UNK

REACTIONS (4)
  - Vomiting [Unknown]
  - Fungal infection [Unknown]
  - Nausea [Unknown]
  - Drug hypersensitivity [Unknown]
